FAERS Safety Report 5926198-1 (Version None)
Quarter: 2008Q4

REPORT INFORMATION
  Report Type: 
  Country: None (occurrence: None)
  Receive Date: 20081017
  Receipt Date: 20081003
  Transmission Date: 20090506
  Serious: Yes (Life-Threatening)
  Sender: FDA-Public Use
  Company Number: JHP200800195

PATIENT
  Sex: 0

DRUGS (1)
  1. EPINEPHRINE [Suspect]
     Indication: ANAPHYLACTIC REACTION
     Dosage: 1 MG OF 1 IN 10,000 CONCENTRATION, INTRAVENOUS
     Route: 042

REACTIONS (4)
  - ACCIDENTAL OVERDOSE [None]
  - CARDIAC DISORDER [None]
  - ILL-DEFINED DISORDER [None]
  - INCORRECT ROUTE OF DRUG ADMINISTRATION [None]
